FAERS Safety Report 4977943-3 (Version None)
Quarter: 2006Q2

REPORT INFORMATION
  Report Type: 
  Country: None (occurrence: None)
  Receive Date: 20060414
  Receipt Date: 20060331
  Transmission Date: 20061013
  Serious: Yes (Death, Hospitalization)
  Sender: FDA-Public Use
  Company Number: S06-CAN-01345-01

PATIENT
  Age: 26 Year
  Sex: Male

DRUGS (1)
  1. CELEXA [Suspect]

REACTIONS (1)
  - COMPLETED SUICIDE [None]
